FAERS Safety Report 13728800 (Version 1)
Quarter: 2017Q3

REPORT INFORMATION
  Report Type: Spontaneous
  Country: US (occurrence: US)
  Receive Date: 20170707
  Receipt Date: 20170707
  Transmission Date: 20171127
  Serious: No
  Sender: FDA-Public Use
  Company Number: US-PFIZER INC-2017295930

PATIENT
  Age: 49 Year
  Sex: Female

DRUGS (1)
  1. EUCRISA [Suspect]
     Active Substance: CRISABOROLE
     Indication: SEBORRHOEIC DERMATITIS
     Dosage: UNK, SINGLE (APPLIED IT ONCE TO HER NOSE ABOUT 3 WEEKS AGO)
     Dates: start: 20170612, end: 20170612

REACTIONS (2)
  - Product use in unapproved indication [Unknown]
  - Burning sensation [Unknown]

NARRATIVE: CASE EVENT DATE: 20170612
